FAERS Safety Report 14342586 (Version 14)
Quarter: 2018Q4

REPORT INFORMATION
  Report Type: Spontaneous
  Country: FR (occurrence: FR)
  Receive Date: 20180102
  Receipt Date: 20181107
  Transmission Date: 20190204
  Serious: Yes (Hospitalization, Other)
  Sender: FDA-Public Use
  Company Number: FR-PFIZER INC-2017550561

PATIENT
  Age: 85 Year
  Sex: Female
  Weight: 68 kg

DRUGS (16)
  1. RILMENIDINE [Suspect]
     Active Substance: RILMENIDINE
     Indication: HYPERTENSION
     Dosage: UNK
     Route: 048
     Dates: start: 2017
  2. NEBIVOLOL HYDROCHLORIDE [Suspect]
     Active Substance: NEBIVOLOL HYDROCHLORIDE
     Indication: HYPERTENSION
     Dosage: UNK
     Route: 048
  3. PERINDOPRIL ARGININE BIOGARAN [Interacting]
     Active Substance: PERINDOPRIL ARGININE
     Indication: HYPERTENSION
     Dosage: 5 MG, 1X/DAY (EVERY NIGHT AROUND 07:00 PM)
     Route: 048
     Dates: start: 2016
  4. ASPIRINE PROTECT [Concomitant]
     Active Substance: ASPIRIN
     Indication: STENT PLACEMENT
     Dosage: UNK
  5. PERINDOPRIL ARGININE BIOGARAN [Interacting]
     Active Substance: PERINDOPRIL ARGININE
     Dosage: UNK, EVERY NIGHT AROUND 07:00
     Route: 048
     Dates: start: 2017
  6. NEBIVOLOL HYDROCHLORIDE [Suspect]
     Active Substance: NEBIVOLOL HYDROCHLORIDE
     Dosage: UNK
  7. NISISCO [Interacting]
     Active Substance: HYDROCHLOROTHIAZIDE\VALSARTAN
     Indication: HYPERTENSION
  8. VALSARTAN AND HYDROCHLOROTHIAZIDE [Concomitant]
     Active Substance: HYDROCHLOROTHIAZIDE\VALSARTAN
     Indication: HYPERTENSION
     Route: 065
  9. SPIRONOLACTONE. [Suspect]
     Active Substance: SPIRONOLACTONE
     Indication: HYPERTENSION
     Dosage: 25 MG, IN THE MORNING
     Route: 048
     Dates: start: 2016
  10. TRAMADOL/PARACETAMOL [Suspect]
     Active Substance: ACETAMINOPHEN\TRAMADOL
     Dosage: UNK
  11. ASPIRINE PROTECT [Concomitant]
     Active Substance: ASPIRIN
     Indication: POSTOPERATIVE CARE
     Dosage: 100 MG, QD
     Route: 065
  12. RILMENIDINE [Suspect]
     Active Substance: RILMENIDINE
     Dosage: UNK
  13. ALDACTAZINE [Concomitant]
     Active Substance: ALTHIAZIDE\SPIRONOLACTONE
     Indication: HYPERTENSION
     Dosage: 1 DF, QD
     Route: 048
     Dates: start: 2016
  14. PERINDOPRIL [Suspect]
     Active Substance: PERINDOPRIL
     Indication: HYPERTENSION
     Dosage: UNK
     Dates: start: 2017
  15. PERINDOPRIL ARGININE BIOGARAN [Interacting]
     Active Substance: PERINDOPRIL ARGININE
     Dosage: 5 MG, QD IN THE EVENING
     Dates: start: 2016
  16. TRAMADOL/PARACETAMOL [Suspect]
     Active Substance: ACETAMINOPHEN\TRAMADOL
     Indication: ARTHRALGIA
     Dosage: UNK
     Route: 048

REACTIONS (19)
  - Labelled drug-drug interaction medication error [Unknown]
  - Fatigue [Unknown]
  - Myalgia [Not Recovered/Not Resolved]
  - Product use issue [Not Recovered/Not Resolved]
  - Diarrhoea [Unknown]
  - Abdominal pain [Unknown]
  - Vasculitis [Unknown]
  - Tachycardia [Unknown]
  - Feeling hot [Unknown]
  - Palpitations [Unknown]
  - Medication error [Unknown]
  - Acute kidney injury [Unknown]
  - Urine output increased [Not Recovered/Not Resolved]
  - Arthralgia [Unknown]
  - Nausea [Unknown]
  - Asthma [Unknown]
  - Dyspnoea [Unknown]
  - Drug ineffective [Unknown]
  - Cough [Unknown]

NARRATIVE: CASE EVENT DATE: 2016
